FAERS Safety Report 21976805 (Version 2)
Quarter: 2023Q1

REPORT INFORMATION
  Report Type: Spontaneous
  Country: US (occurrence: US)
  Receive Date: 20230210
  Receipt Date: 20230320
  Transmission Date: 20230418
  Serious: No
  Sender: FDA-Public Use
  Company Number: US-PFIZER INC-2019144761

PATIENT
  Age: 63 Year
  Sex: Female
  Weight: 45.36 kg

DRUGS (4)
  1. PREMARIN [Suspect]
     Active Substance: ESTROGENS, CONJUGATED
     Indication: Vulvovaginal dryness
     Dosage: 1 G, ALTERNATE DAY (INSERT 1G BY VAGINAL ROUTE EVERY OTHER DAY)
     Route: 067
  2. PREMARIN [Suspect]
     Active Substance: ESTROGENS, CONJUGATED
     Dosage: 0.625 EVERY DAY (0.625 IN HER VAGINA EVERY DAY)
     Route: 067
  3. PREMARIN [Suspect]
     Active Substance: ESTROGENS, CONJUGATED
     Dosage: UNK UNK, 2X/WEEK (INSERT 0.5 APPLICATOR(S)FUL TWICE A TWICE A WEEK BY VAGINAL ROUTE)
     Route: 067
  4. PREMARIN [Suspect]
     Active Substance: ESTROGENS, CONJUGATED
     Dosage: UNK, 1X/DAY (INSERT 1/2 APPLICATORFUL PER VAGINA QHS (EVERY NIGHT))
     Route: 067

REACTIONS (2)
  - Cough [Unknown]
  - Off label use [Unknown]
